FAERS Safety Report 11809827 (Version 1)
Quarter: 2015Q4

REPORT INFORMATION
  Report Type: Spontaneous
  Country: DK (occurrence: DK)
  Receive Date: 20151208
  Receipt Date: 20151208
  Transmission Date: 20160305
  Serious: Yes (Life-Threatening)
  Sender: FDA-Public Use
  Company Number: DK-ROCHE-ITM201409IM006984

PATIENT
  Age: 56 Year
  Sex: Male

DRUGS (3)
  1. ESBRIET [Suspect]
     Active Substance: PIRFENIDONE
     Indication: IDIOPATHIC PULMONARY FIBROSIS
     Dosage: 1 CAPSULE THREE TIMES DAILY.
     Route: 048
     Dates: start: 20140709
  2. ESBRIET [Suspect]
     Active Substance: PIRFENIDONE
     Dosage: 2 CAPSULE, THREE TIMES DAILY
     Route: 048
     Dates: start: 20140716
  3. ESBRIET [Suspect]
     Active Substance: PIRFENIDONE
     Dosage: 3 CAPSULE, THREE TIMES DAILY.
     Route: 048
     Dates: start: 20140723, end: 20140905

REACTIONS (2)
  - Neutropenia [Recovered/Resolved]
  - Decreased appetite [Unknown]

NARRATIVE: CASE EVENT DATE: 20140806
